FAERS Safety Report 10040533 (Version 2)
Quarter: 2017Q1

REPORT INFORMATION
  Report Type: Spontaneous
  Country: US (occurrence: US)
  Receive Date: 20140327
  Receipt Date: 20170206
  Transmission Date: 20170428
  Serious: Yes (Other)
  Sender: FDA-Public Use
  Company Number: US-ALEXION-A201202824

PATIENT
  Sex: Female

DRUGS (16)
  1. SOLIRIS [Suspect]
     Active Substance: ECULIZUMAB
     Indication: HAEMOLYTIC URAEMIC SYNDROME
     Dosage: 900 MG, QW
     Route: 042
  2. ANTITHYMOCYTE IMMUNOGLOBULIN [Concomitant]
     Active Substance: THYMOCYTE IMMUNE GLOBULIN NOS
     Indication: IMMUNOSUPPRESSION
     Route: 065
  3. WARFARIN [Concomitant]
     Active Substance: WARFARIN
     Indication: JUGULAR VEIN THROMBOSIS
  4. HEPARIN [Concomitant]
     Active Substance: HEPARIN SODIUM
     Indication: SUBCLAVIAN ARTERY THROMBOSIS
     Route: 065
  5. MYCOPHENOLATE MOFETIL. [Concomitant]
     Active Substance: MYCOPHENOLATE MOFETIL
     Indication: IMMUNOSUPPRESSION
     Route: 065
  6. SOLIRIS [Suspect]
     Active Substance: ECULIZUMAB
     Dosage: 1200 MG, Q2W
     Route: 042
  7. TACROLIMUS. [Concomitant]
     Active Substance: TACROLIMUS
     Indication: IMMUNOSUPPRESSION
     Route: 065
  8. RITUXIMAB [Concomitant]
     Active Substance: RITUXIMAB
     Indication: TRANSPLANT REJECTION
     Route: 065
  9. METHYLPREDNISOLONE. [Concomitant]
     Active Substance: METHYLPREDNISOLONE
     Indication: TRANSPLANT REJECTION
     Route: 065
  10. BORTEZOMIB [Concomitant]
     Active Substance: BORTEZOMIB
     Indication: TRANSPLANT REJECTION
     Route: 065
  11. PREDNISONE. [Concomitant]
     Active Substance: PREDNISONE
     Indication: TRANSPLANT REJECTION
     Route: 065
  12. ARGATROBAN. [Concomitant]
     Active Substance: ARGATROBAN
     Indication: JUGULAR VEIN THROMBOSIS
  13. HEPARIN [Concomitant]
     Active Substance: HEPARIN SODIUM
     Indication: JUGULAR VEIN THROMBOSIS
  14. ARGATROBAN. [Concomitant]
     Active Substance: ARGATROBAN
     Indication: SUBCLAVIAN ARTERY THROMBOSIS
     Route: 065
  15. ALEMTUZUMAB [Concomitant]
     Active Substance: ALEMTUZUMAB
     Indication: TRANSPLANT REJECTION
     Route: 065
  16. WARFARIN [Concomitant]
     Active Substance: WARFARIN
     Indication: SUBCLAVIAN ARTERY THROMBOSIS
     Route: 065

REACTIONS (1)
  - Kidney transplant rejection [Unknown]
